FAERS Safety Report 17752239 (Version 1)
Quarter: 2020Q2

REPORT INFORMATION
  Report Type: Report from Study
  Country: IN (occurrence: IN)
  Receive Date: 20200506
  Receipt Date: 20200506
  Transmission Date: 20200714
  Serious: Yes (Death)
  Sender: FDA-Public Use
  Company Number: IN-MYLANLABS-2020M1044852

PATIENT

DRUGS (23)
  1. CYTARABINE. [Suspect]
     Active Substance: CYTARABINE
     Dosage: 24 MILLIGRAM
     Route: 037
  2. CYCLOPHOSPHAMIDE. [Suspect]
     Active Substance: CYCLOPHOSPHAMIDE
     Dosage: 300 MG/M2 ON DAY 1 (PREPHASE THERAPY)
     Route: 065
  3. VINBLASTINE [Suspect]
     Active Substance: VINBLASTINE
     Dosage: 6 MG/M2 ON DAYS 1 AND 8 (CYCLE B)
     Route: 065
  4. CYTARABINE. [Suspect]
     Active Substance: CYTARABINE
     Indication: ANAPLASTIC LARGE-CELL LYMPHOMA
     Dosage: 18 MG ON DAY 4 (CYCLE A AND CYCLE B)
     Route: 037
  5. CYTARABINE. [Suspect]
     Active Substance: CYTARABINE
     Dosage: 36 MILLIGRAM
     Route: 037
  6. VINBLASTINE [Suspect]
     Active Substance: VINBLASTINE
     Dosage: 6 MG/M2 ON DAY 1 (PREPHASE THERAPY)
     Route: 065
  7. IFOSFAMIDE. [Suspect]
     Active Substance: IFOSFAMIDE
     Indication: ANAPLASTIC LARGE-CELL LYMPHOMA
     Dosage: 1200 MG/M2 ON DAYS 1-5 (CYCLE B)
     Route: 065
  8. MESNA. [Suspect]
     Active Substance: MESNA
     Indication: ANAPLASTIC LARGE-CELL LYMPHOMA
     Dosage: 400MG/,2ADMINISTERED AT 0, 4, AND 8 HOURS FOLLOWING THE INITIATION OF IFOSFAMIDE INFUSION (CYCLE B)
     Route: 042
  9. 6-MERCAPTOPURINE MONOHYDRATE [Suspect]
     Active Substance: MERCAPTOPURINE
     Indication: ANAPLASTIC LARGE-CELL LYMPHOMA
     Dosage: 50 MILLIGRAM/SQ. METER, QD(MAINTENANCE THERAPY)
     Route: 048
  10. METHOTREXATE. [Suspect]
     Active Substance: METHOTREXATE
     Indication: ANAPLASTIC LARGE-CELL LYMPHOMA
     Dosage: 6MG ON DAYS 8 AND 11 (CYCLE A AND CYCLE B)
     Route: 037
  11. METHOTREXATE. [Suspect]
     Active Substance: METHOTREXATE
     Dosage: 8 MILLIGRAM
     Route: 037
  12. ETOPOSIDE. [Suspect]
     Active Substance: ETOPOSIDE
     Indication: ANAPLASTIC LARGE-CELL LYMPHOMA
     Dosage: 60 MG/M2 ON DAYS 1-3 (CYCLE B)
     Route: 065
  13. METHOTREXATE. [Suspect]
     Active Substance: METHOTREXATE
     Indication: ANAPLASTIC LARGE-CELL LYMPHOMA
     Dosage: 15 MG/M2 ON DAYS 1-3 (CYCLE B)
     Route: 065
  14. METHOTREXATE. [Suspect]
     Active Substance: METHOTREXATE
     Dosage: 20 MILLIGRAM/SQ. METER, QW
     Route: 048
  15. VINBLASTINE [Suspect]
     Active Substance: VINBLASTINE
     Indication: ANAPLASTIC LARGE-CELL LYMPHOMA
     Dosage: 6 MG/M2 ON DAYS 1, 8 AND 15 (CYCLE A)
     Route: 065
  16. METHOTREXATE. [Suspect]
     Active Substance: METHOTREXATE
     Dosage: 10 MILLIGRAM
     Route: 037
  17. CYCLOPHOSPHAMIDE. [Suspect]
     Active Substance: CYCLOPHOSPHAMIDE
     Indication: ANAPLASTIC LARGE-CELL LYMPHOMA
     Dosage: 800 MG/M2 ON DAY 1 (CYCLE A)
     Route: 065
  18. CYCLOPHOSPHAMIDE. [Suspect]
     Active Substance: CYCLOPHOSPHAMIDE
     Dosage: 200 MG/M2 ON DAYS 2-4 (CYCLE A)
     Route: 065
  19. METHOTREXATE. [Suspect]
     Active Substance: METHOTREXATE
     Dosage: 12 MILLIGRAM
     Route: 037
  20. CYTARABINE. [Suspect]
     Active Substance: CYTARABINE
     Dosage: 70 MILLIGRAM
     Route: 037
  21. CYTARABINE. [Suspect]
     Active Substance: CYTARABINE
     Dosage: 1000 MG/M2 ON DAY 1 (CYCLE A)
     Route: 065
  22. DOXORUBICIN [Suspect]
     Active Substance: DOXORUBICIN
     Indication: ANAPLASTIC LARGE-CELL LYMPHOMA
     Dosage: 20 MG/M2 ON DAYS 1 AND 2 (CYCLE A)
     Route: 065
  23. PREDNISOLONE. [Suspect]
     Active Substance: PREDNISOLONE
     Indication: ANAPLASTIC LARGE-CELL LYMPHOMA
     Dosage: 40 MG/M2 ON DAYS 1-7 (PREPHASE THERAPY)
     Route: 065

REACTIONS (1)
  - Encephalitis [Fatal]
